FAERS Safety Report 5613172-8 (Version None)
Quarter: 2008Q1

REPORT INFORMATION
  Report Type: 
  Country: None (occurrence: None)
  Receive Date: 20080129
  Receipt Date: 20080122
  Transmission Date: 20080703
  Serious: Yes (Death)
  Sender: FDA-Public Use
  Company Number: LTI2008A00024

PATIENT
  Age: 73 Year
  Sex: Female

DRUGS (5)
  1. ACTOS [Suspect]
     Indication: TYPE 1 DIABETES MELLITUS
     Dosage: 15 MG (15 MG, 1 IN 1 D) ORAL
     Route: 048
     Dates: start: 20070827, end: 20071011
  2. INSULIN (INSULIN) [Suspect]
     Indication: TYPE 1 DIABETES MELLITUS
     Dosage: INJECTION
     Dates: start: 19940101
  3. COAPROVEL (HYDROCHLOROTHIAZIDE, IRBESARTAN) [Suspect]
     Dosage: 1 DF (1 DF)
     Dates: start: 20070101
  4. ALDACTONE [Suspect]
     Dates: start: 20070101
  5. PLAVIX [Suspect]
     Dosage: 1 IN 1D
     Dates: start: 20040101

REACTIONS (3)
  - GLYCOSYLATED HAEMOGLOBIN INCREASED [None]
  - SUDDEN DEATH [None]
  - WEIGHT INCREASED [None]
